FAERS Safety Report 10942057 (Version 2)
Quarter: 2015Q3

REPORT INFORMATION
  Report Type: Report from Study
  Country: VE (occurrence: VE)
  Receive Date: 20150322
  Receipt Date: 20150707
  Transmission Date: 20151125
  Serious: Yes (Other)
  Sender: FDA-Public Use
  Company Number: VE-BRISTOL-MYERS SQUIBB COMPANY-21522313

PATIENT
  Age: 73 Year
  Sex: Female

DRUGS (1)
  1. ABATACEPT [Suspect]
     Active Substance: ABATACEPT
     Indication: PRODUCT USED FOR UNKNOWN INDICATION
     Dosage: 250 MG, UNK; 3 VIALS FOR PATIENTS } TO 60 KG AND { TO 100 KG
     Route: 042
     Dates: start: 20120214, end: 20150305

REACTIONS (4)
  - Dry skin [Unknown]
  - Upper limb fracture [Recovering/Resolving]
  - Urinary tract infection [Recovering/Resolving]
  - Hypersensitivity [Unknown]

NARRATIVE: CASE EVENT DATE: 20150301
